FAERS Safety Report 9398710 (Version 1)
Quarter: 2013Q3

REPORT INFORMATION
  Report Type: Spontaneous
  Country: PL (occurrence: PL)
  Receive Date: 20130712
  Receipt Date: 20130712
  Transmission Date: 20140515
  Serious: Yes (Other)
  Sender: FDA-Public Use
  Company Number: PL-PFIZER INC-2013201114

PATIENT
  Age: 70 Year
  Sex: Female

DRUGS (2)
  1. METHYLPREDNISOLONE [Suspect]
     Indication: ASTHMA
     Dosage: 8 MG/D
     Route: 048
  2. TRIAMCINOLONE [Suspect]
     Indication: ASTHMA
     Dosage: 32 MG/DAY
     Route: 048

REACTIONS (9)
  - Acute myocardial infarction [Unknown]
  - Cardiac failure chronic [Unknown]
  - Diabetes mellitus [Unknown]
  - Coronary artery disease [Unknown]
  - Hepatic steatosis [Unknown]
  - Hypertension [Unknown]
  - Osteoporosis [Unknown]
  - Asthma [Unknown]
  - Central obesity [Unknown]
